FAERS Safety Report 9765900 (Version 1)
Quarter: 2013Q4

REPORT INFORMATION
  Report Type: Spontaneous
  Country: US (occurrence: US)
  Receive Date: 20131217
  Receipt Date: 20131217
  Transmission Date: 20140711
  Serious: No
  Sender: FDA-Public Use
  Company Number: US-GLAXOSMITHKLINE-A1013483A

PATIENT
  Sex: Female

DRUGS (1)
  1. VOTRIENT [Suspect]
     Indication: BREAST CANCER
     Dosage: 800MG PER DAY
     Route: 048
     Dates: start: 20130301

REACTIONS (3)
  - Surgery [Unknown]
  - Drug ineffective [Not Recovered/Not Resolved]
  - Disease progression [Not Recovered/Not Resolved]
